FAERS Safety Report 7921160-1 (Version None)
Quarter: 2011Q4

REPORT INFORMATION
  Report Type: 
  Country: None (occurrence: None)
  Receive Date: 20111117
  Receipt Date: 20111114
  Transmission Date: 20120403
  Serious: Yes (Hospitalization, Other)
  Sender: FDA-Public Use
  Company Number: HU-PFIZER INC-2011280533

PATIENT
  Age: 58 Year
  Sex: Female
  Weight: 82 kg

DRUGS (7)
  1. ATORVASTATIN CALCIUM [Suspect]
     Dosage: UNK, 1X/DAY
     Dates: start: 20110501, end: 20110901
  2. METFORMIN HCL [Concomitant]
     Dosage: UNK
     Dates: start: 20110101
  3. ASPIRIN [Concomitant]
     Dosage: UNK
     Dates: start: 20110501
  4. COVEREX AS [Concomitant]
     Dosage: UNK
     Dates: start: 20110501
  5. TENAXUM [Concomitant]
     Dosage: UNK
     Dates: start: 20110601
  6. METFORMIN HYDROCHLORIDE [Concomitant]
     Dosage: UNK
     Dates: start: 20110601
  7. COVERCARD [Suspect]
     Dosage: UNK
     Dates: start: 20110501

REACTIONS (4)
  - FEELING ABNORMAL [None]
  - PAIN IN EXTREMITY [None]
  - LIVER DISORDER [None]
  - PAIN [None]
